FAERS Safety Report 10581930 (Version 2)
Quarter: 2014Q4

REPORT INFORMATION
  Report Type: Spontaneous
  Country: US (occurrence: US)
  Receive Date: 20141113
  Receipt Date: 20141113
  Transmission Date: 20150529
  Serious: No
  Sender: FDA-Public Use
  Company Number: US-PFIZER INC-2014310268

PATIENT
  Age: 43 Year
  Sex: Male
  Weight: 126.98 kg

DRUGS (2)
  1. LYRICA [Suspect]
     Active Substance: PREGABALIN
     Dosage: 150 MG, 3X/DAY
  2. LYRICA [Suspect]
     Active Substance: PREGABALIN
     Indication: PAIN
     Dosage: 150 MG, 2X/DAY
     Dates: start: 2009

REACTIONS (3)
  - Pre-existing condition improved [Unknown]
  - Therapeutic response unexpected [Unknown]
  - Increased appetite [Unknown]

NARRATIVE: CASE EVENT DATE: 2009
